FAERS Safety Report 8347462-5 (Version None)
Quarter: 2012Q2

REPORT INFORMATION
  Report Type: 
  Country: None (occurrence: None)
  Receive Date: 20120509
  Receipt Date: 20120227
  Transmission Date: 20120825
  Serious: No
  Sender: FDA-Public Use
  Company Number: US-GLAXOSMITHKLINE-A0967668A

PATIENT
  Age: 14 Year
  Sex: Female

DRUGS (2)
  1. UNKNOWN [Concomitant]
  2. VELTIN [Suspect]
     Indication: ACNE
     Dosage: 1APP UNKNOWN
     Route: 061
     Dates: start: 20120223, end: 20120224

REACTIONS (4)
  - ERYTHEMA [None]
  - HYPERSENSITIVITY [None]
  - SKIN EXFOLIATION [None]
  - FACE OEDEMA [None]
